FAERS Safety Report 7908009-8 (Version None)
Quarter: 2011Q4

REPORT INFORMATION
  Report Type: 
  Country: None (occurrence: None)
  Receive Date: 20111110
  Receipt Date: 20111101
  Transmission Date: 20120403
  Serious: Yes (Hospitalization)
  Sender: FDA-Public Use
  Company Number: KR-ASTRAZENECA-2011SE65962

PATIENT
  Age: 59 Year
  Sex: Male
  Weight: 83.8 kg

DRUGS (6)
  1. RHONAL BABY [Concomitant]
     Indication: HYPERTENSION
     Route: 048
     Dates: start: 20050214
  2. RHONAL BABY [Concomitant]
     Indication: CORONARY ANGIOPLASTY
     Route: 048
     Dates: start: 20050214
  3. COZAAR [Concomitant]
     Indication: HYPERTENSION
     Route: 048
     Dates: start: 20050214
  4. DICHLOZID [Concomitant]
     Indication: HYPERTENSION
     Route: 048
     Dates: start: 20050214
  5. CRESTOR [Suspect]
     Route: 048
     Dates: start: 20050214, end: 20050509
  6. PLAVIX [Concomitant]
     Indication: CORONARY ANGIOPLASTY
     Route: 048
     Dates: start: 20050428

REACTIONS (1)
  - ANGINA UNSTABLE [None]
